FAERS Safety Report 6603431-4 (Version None)
Quarter: 2010Q1

REPORT INFORMATION
  Report Type: 
  Country: None (occurrence: None)
  Receive Date: 20100226
  Receipt Date: 20090518
  Transmission Date: 20100710
  Serious: No
  Sender: FDA-Public Use
  Company Number: A0784850A

PATIENT
  Sex: Female

DRUGS (2)
  1. VALTREX [Suspect]
     Dosage: 500MG PER DAY
     Route: 048
     Dates: start: 19990101
  2. NO CONCURRENT MEDICATION [Concomitant]

REACTIONS (6)
  - CHEILITIS [None]
  - FATIGUE [None]
  - HEADACHE [None]
  - PALLOR [None]
  - PRURITUS [None]
  - WHITE BLOOD CELL COUNT DECREASED [None]
